FAERS Safety Report 7858264 (Version 5)
Quarter: 2012Q4

REPORT INFORMATION
  Report Type: 
  Country: US (occurrence: US)
  Receive Date: 20110316
  Receipt Date: 20120912
  Transmission Date: 20130627
  Serious: Yes (Death, Hospitalization)
  Sender: FDA-Public Use
  Company Number: US-ROCHE-733624

PATIENT
  Age: 67 Year
  Sex: Female
  Weight: 123.9 kg

DRUGS (18)
  1. CELLCEPT [Suspect]
     Indication: PROPHYLAXIS AGAINST TRANSPLANT REJECTION
     Route: 048
     Dates: start: 20080711, end: 20090914
  2. CELLCEPT [Suspect]
     Route: 048
     Dates: start: 20090915, end: 20091111
  3. CELLCEPT [Suspect]
     Route: 048
     Dates: start: 20091112, end: 20091118
  4. CYCLOSPORINE [Suspect]
     Indication: PROPHYLAXIS AGAINST TRANSPLANT REJECTION
     Route: 048
     Dates: start: 20090616, end: 20091124
  5. CYCLOSPORINE [Suspect]
     Route: 048
     Dates: start: 20090616, end: 20091124
  6. PREDNISONE [Suspect]
     Indication: PROPHYLAXIS AGAINST TRANSPLANT REJECTION
     Route: 048
     Dates: start: 20080721, end: 20091124
  7. ADVAIR [Concomitant]
  8. FLUNISOLIDE [Concomitant]
  9. HYDRALAZINE [Concomitant]
  10. ISOSORBIDE [Concomitant]
  11. LEVOTHYROXINE [Concomitant]
  12. METOPROLOL [Concomitant]
  13. OMEPRAZOLE [Concomitant]
  14. SODIUM BICARBONATE [Concomitant]
  15. SPIRIVA [Concomitant]
  16. VALCYTE [Concomitant]
  17. MOXIFLOXACIN [Concomitant]
     Route: 065
     Dates: start: 20091113
  18. HEPARIN [Concomitant]

REACTIONS (6)
  - Sepsis [Fatal]
  - Diabetic ketoacidosis [Not Recovered/Not Resolved]
  - Liver function test abnormal [Fatal]
  - Renal failure acute [Fatal]
  - Atrial flutter [Fatal]
  - Mental status changes [Fatal]
